FAERS Safety Report 8446532-0 (Version None)
Quarter: 2012Q2

REPORT INFORMATION
  Report Type: 
  Country: None (occurrence: None)
  Receive Date: 20120618
  Receipt Date: 20120608
  Transmission Date: 20120825
  Serious: Yes (Other)
  Sender: FDA-Public Use
  Company Number: JP-MERCK-1206USA02101

PATIENT
  Age: 78 Year
  Sex: Female

DRUGS (2)
  1. PEPCID RPD [Suspect]
     Route: 048
  2. CRESTOR [Concomitant]
     Route: 048

REACTIONS (1)
  - DRUG-INDUCED LIVER INJURY [None]
